FAERS Safety Report 4594197-0 (Version None)
Quarter: 2005Q1

REPORT INFORMATION
  Report Type: 
  Country: None (occurrence: None)
  Receive Date: 20050223
  Receipt Date: 20050209
  Transmission Date: 20050727
  Serious: Yes (Hospitalization)
  Sender: FDA-Public Use
  Company Number: 2005BI003057

PATIENT
  Age: 18 Year
  Sex: Female

DRUGS (1)
  1. AVONEX [Suspect]
     Indication: MULTIPLE SCLEROSIS
     Dosage: 30 UG; QW; IM
     Route: 030
     Dates: start: 20041207

REACTIONS (4)
  - ABASIA [None]
  - HEMIPARESIS [None]
  - MUSCULAR WEAKNESS [None]
  - VISUAL DISTURBANCE [None]
